FAERS Safety Report 9160850 (Version 1)
Quarter: 2013Q1

REPORT INFORMATION
  Report Type: Spontaneous
  Country: US (occurrence: None)
  Receive Date: 20130308
  Receipt Date: 20130308
  Transmission Date: 20140127
  Serious: Yes (Other)
  Sender: FDA-Public Use
  Company Number: None

PATIENT
  Age: 76 Year
  Sex: Female
  Weight: 51.71 kg

DRUGS (1)
  1. FORTEO [Suspect]
     Indication: OSTEOPOROSIS
     Dosage: 20 MCG PER DOSE DAILY - ONCE SELF-INJECT ABDOMEN
     Dates: start: 20121214, end: 20130115

REACTIONS (5)
  - Movement disorder [None]
  - Myalgia [None]
  - Middle insomnia [None]
  - Balance disorder [None]
  - Gait disturbance [None]
